FAERS Safety Report 20848935 (Version 1)
Quarter: 2022Q2

REPORT INFORMATION
  Report Type: Report from Study
  Country: GB (occurrence: GB)
  Receive Date: 20220519
  Receipt Date: 20220519
  Transmission Date: 20220720
  Serious: Yes (Hospitalization, Other)
  Sender: FDA-Public Use
  Company Number: GB-NOVARTISPH-NVSC2022GB112191

PATIENT

DRUGS (33)
  1. DOCETAXEL [Suspect]
     Active Substance: DOCETAXEL
     Indication: Breast cancer metastatic
     Dosage: 148 MG, Q3W (148 MG, EVERY 3 WEEKS)
     Route: 042
     Dates: start: 20171108, end: 20180131
  2. TRASTUZUMAB [Suspect]
     Active Substance: TRASTUZUMAB
     Indication: Product used for unknown indication
     Dosage: 600 MG, Q3W (600 MG, EVERY 3 WEEKS (PHARMACEUTICAL DOSE FORM: 231))
     Route: 058
     Dates: start: 20211015
  3. TRASTUZUMAB [Suspect]
     Active Substance: TRASTUZUMAB
     Dosage: 882 MG, Q3W (882 MG, EVERY 3 WEEKS (PHARMACEUTICAL DOSE FORM: 230; CUMULATIVE DOSE: 29734.25 MG))
     Route: 042
     Dates: start: 20171108, end: 20171129
  4. TRASTUZUMAB [Suspect]
     Active Substance: TRASTUZUMAB
     Dosage: 651 MG, Q3W (651 MG, EVERY 3 WEEKS (PHARMACEUTICAL DOSE FORM: 230))
     Route: 042
     Dates: start: 20171129, end: 20210903
  5. PERTUZUMAB [Suspect]
     Active Substance: PERTUZUMAB
     Indication: Breast cancer metastatic
     Dosage: 840 MG, Q3W (840 MG, EVERY 3 WEEKS (CUMULATIVE DOSE: 27958.334 MG; PHARMACEUTICAL DOSE FORM: 230))
     Route: 042
     Dates: start: 20171108, end: 20171129
  6. PERTUZUMAB [Suspect]
     Active Substance: PERTUZUMAB
     Dosage: 420 MG, Q3W (420 MG, EVERY 3 WEEKS (PHARMACEUTICAL DOSE FORM: 230; CUMULATIVE DOSE: 13739.167 MG))
     Route: 042
     Dates: start: 20171129, end: 20210924
  7. PERTUZUMAB [Suspect]
     Active Substance: PERTUZUMAB
     Dosage: 600 MG, Q3W (600 MG, EVERY 3 WEEKS (PHARMACEUTICAL DOSE FORM: 230))
     Route: 058
     Dates: start: 20211015
  8. CALCIUM CARBONATE [Concomitant]
     Active Substance: CALCIUM CARBONATE
     Indication: Product used for unknown indication
     Dosage: UNK UNK, QD
     Route: 048
  9. BECLOMETHASONE DIPROPIONATE [Concomitant]
     Active Substance: BECLOMETHASONE DIPROPIONATE
     Indication: Product used for unknown indication
     Dosage: DOSE: 2; 2 PUFF
     Route: 055
  10. CLONAZEPAM [Concomitant]
     Active Substance: CLONAZEPAM
     Indication: Muscle spasms
     Dosage: 250 MG, QD (250 MG, DAILY (PHARMACEUTICAL DOSE FORM: 245))
     Route: 048
     Dates: start: 202006
  11. CHOLECALCIFEROL [Concomitant]
     Active Substance: CHOLECALCIFEROL
     Indication: Product used for unknown indication
     Dosage: DOSE:2 (PHARMACEUTICAL DOSE FORM: 245)
     Route: 048
  12. ERYTHROMYCIN [Concomitant]
     Active Substance: ERYTHROMYCIN
     Indication: Vascular device infection
     Dosage: 2000 MG, QD (2000 MG, DAILY (PHARMACEUTICAL DOSE FORM: 245))
     Route: 048
     Dates: start: 2020, end: 2020
  13. FERROUS FUMARATE [Concomitant]
     Active Substance: FERROUS FUMARATE
     Indication: Product used for unknown indication
     Dosage: UNK UNK, QD
     Route: 065
  14. LACTULOSE [Concomitant]
     Active Substance: LACTULOSE
     Indication: Prophylaxis
     Dosage: UNK UNK, QD
     Route: 048
  15. LINEZOLID [Concomitant]
     Active Substance: LINEZOLID
     Indication: Vascular device infection
     Dosage: 1200 MG, QD (1200 MG, DAILY (PHARMACEUTICAL DOSE FORM : 245))
     Route: 048
     Dates: start: 20191125, end: 20191130
  16. MAGNESIUM OXIDE [Concomitant]
     Active Substance: MAGNESIUM OXIDE
     Indication: Product used for unknown indication
     Dosage: UNK
     Route: 065
  17. MANGANESE [Concomitant]
     Active Substance: MANGANESE CHLORIDE
     Indication: Product used for unknown indication
     Dosage: UNK UNK, QD
     Route: 065
  18. METFORMIN [Concomitant]
     Active Substance: METFORMIN HYDROCHLORIDE
     Indication: Product used for unknown indication
     Dosage: 1000 MG, QD (1000 MG, DAILY (PHARMACEUTICAL DOSE FORM: 245))
     Route: 048
  19. MIRTAZAPINE [Concomitant]
     Active Substance: MIRTAZAPINE
     Indication: Product used for unknown indication
     Dosage: 45 MG, QD (45 MG, DAILY (PHARMACEUTICAL DOSE FORM: 245))
     Route: 048
  20. MORPHINE [Concomitant]
     Active Substance: MORPHINE
     Indication: Diarrhoea
     Dosage: 5 MG
     Route: 042
     Dates: start: 20181002, end: 20181002
  21. MORPHINE [Concomitant]
     Active Substance: MORPHINE
     Indication: Vomiting
     Dosage: UNK
     Route: 065
  22. NITROFURANTOIN [Concomitant]
     Active Substance: NITROFURANTOIN
     Indication: Urinary tract infection
     Dosage: 200 MG, QD (200 MG, DAILY (PHARMACEUTICAL DOSE FORM: 245))
     Route: 048
     Dates: start: 20181103, end: 20181109
  23. OMEPRAZOLE [Concomitant]
     Active Substance: OMEPRAZOLE
     Indication: Product used for unknown indication
     Dosage: 40 MG, QD (40 MG, DAILY (PHARMACEUTICAL DOSE FORM: 5))
     Route: 048
     Dates: start: 201710
  24. ONDANSETRON [Concomitant]
     Active Substance: ONDANSETRON
     Indication: Vomiting
     Dosage: 4 MG
     Route: 042
     Dates: start: 20181002, end: 20181002
  25. ONDANSETRON [Concomitant]
     Active Substance: ONDANSETRON
     Indication: Diarrhoea
     Dosage: UNK
     Route: 065
  26. OXYCODONE [Concomitant]
     Active Substance: OXYCODONE
     Indication: Pain
     Dosage: 220 MG, QD (220 MG, DAILY (PHARMACEUTICAL DOSE FORM: 245))
     Route: 048
  27. QUETIAPINE [Concomitant]
     Active Substance: QUETIAPINE
     Indication: Depressed mood
     Dosage: 150 MG, QD (150 MG, DAILY (PHARMACEUTICAL DOSE FORM: 245))
     Route: 048
     Dates: start: 2020
  28. QUETIAPINE [Concomitant]
     Active Substance: QUETIAPINE
     Dosage: 100 MG, QD (100 MG, DAILY (PHARMACEUTICAL DOSE FORM: 245) (STOP DATE: 2020))
     Route: 048
     Dates: start: 2020
  29. RAMIPRIL [Concomitant]
     Active Substance: RAMIPRIL
     Indication: Product used for unknown indication
     Dosage: 1.25 MG, QD (1.25 MG, DAILY (PHARMACEUTICAL DOSE FORM:245))
     Route: 048
  30. ALBUTEROL [Concomitant]
     Active Substance: ALBUTEROL
     Indication: Product used for unknown indication
     Dosage: DOSE: 1, AS NECESSARY; 2 PUFF
     Route: 055
  31. SIMVASTATIN [Concomitant]
     Active Substance: SIMVASTATIN
     Indication: Product used for unknown indication
     Dosage: 40 MG, DAILY (PHARMACEUTICAL DOSE FORM: 245)
     Route: 048
  32. SODIUM PICOSULFATE [Concomitant]
     Active Substance: SODIUM PICOSULFATE
     Indication: Constipation
     Dosage: UNK UNK, QD (DOSE: 1, DAILY)
     Route: 048
  33. VANCOMYCIN [Concomitant]
     Active Substance: VANCOMYCIN
     Indication: Vascular device infection
     Dosage: 3500 MG, DAILY
     Route: 042
     Dates: start: 20200612

REACTIONS (4)
  - Off label use [Unknown]
  - Vascular device infection [Unknown]
  - Functional gastrointestinal disorder [Recovered/Resolved]
  - Gastrointestinal disorder [Recovered/Resolved]

NARRATIVE: CASE EVENT DATE: 20191008
